FAERS Safety Report 21006513 (Version 1)
Quarter: 2022Q2

REPORT INFORMATION
  Report Type: Spontaneous
  Country: US (occurrence: US)
  Receive Date: 20220624
  Receipt Date: 20220624
  Transmission Date: 20220720
  Serious: No
  Sender: FDA-Public Use
  Company Number: US-009507513-2206USA004831

PATIENT
  Age: 88 Year
  Sex: Male

DRUGS (6)
  1. CUBICIN [Suspect]
     Active Substance: DAPTOMYCIN
     Indication: Endocarditis staphylococcal
     Dosage: 8 MG/KG IV EVERY24 HOURS FOR A TOTAL OF 6 WEEKS
     Route: 042
  2. AMLODIPINE [Concomitant]
     Active Substance: AMLODIPINE BESYLATE
  3. ASPIRIN [Concomitant]
     Active Substance: ASPIRIN
  4. IBRUTINIB [Concomitant]
     Active Substance: IBRUTINIB
  5. ROSUVASTATIN [Concomitant]
     Active Substance: ROSUVASTATIN
  6. TAMSULOSIN [Concomitant]
     Active Substance: TAMSULOSIN

REACTIONS (1)
  - Product use in unapproved indication [Unknown]
